FAERS Safety Report 14171553 (Version 2)
Quarter: 2017Q4

REPORT INFORMATION
  Report Type: Spontaneous
  Country: SA (occurrence: SA)
  Receive Date: 20171108
  Receipt Date: 20171220
  Transmission Date: 20180321
  Serious: Yes (Death, Hospitalization)
  Sender: FDA-Public Use
  Company Number: SA-SA-2017SA216449

PATIENT
  Sex: Female
  Weight: 8 kg

DRUGS (1)
  1. MYOZYME [Suspect]
     Active Substance: ALGLUCOSIDASE ALFA
     Indication: GLYCOGEN STORAGE DISEASE TYPE II
     Route: 041
     Dates: end: 201710

REACTIONS (7)
  - Rash [Unknown]
  - Cardiomegaly [Unknown]
  - Lower respiratory tract infection [Fatal]
  - Off label use [Unknown]
  - Respiratory distress [Fatal]
  - Hypertrophic cardiomyopathy [Unknown]
  - Hypotonia [Unknown]
